FAERS Safety Report 8812416 (Version 2)
Quarter: 2013Q2

REPORT INFORMATION
  Report Type: Spontaneous
  Country: BR (occurrence: BR)
  Receive Date: 20120927
  Receipt Date: 20130409
  Transmission Date: 20140414
  Serious: Yes (Death, Other)
  Sender: FDA-Public Use
  Company Number: BR-ALEXION PHARMACEUTICALS INC.-A201201766

PATIENT
  Age: 46 Year
  Sex: Male

DRUGS (7)
  1. SOLIRIS 300MG [Suspect]
     Indication: PAROXYSMAL NOCTURNAL HAEMOGLOBINURIA
     Dosage: 900 MG, Q2W
     Route: 042
     Dates: start: 20110518
  2. SOLIRIS 300MG [Suspect]
     Dosage: 900 MG Q15D
     Route: 042
     Dates: end: 20120916
  3. FOLATE [Concomitant]
  4. B12-VITAMIN [Concomitant]
  5. VITAMIN C [Concomitant]
  6. FUROSEMIDE [Concomitant]
  7. PENVIR [Concomitant]

REACTIONS (14)
  - Cardiac arrest [Fatal]
  - Hypoglycaemia [Fatal]
  - Renal failure acute [Recovering/Resolving]
  - Liver disorder [Not Recovered/Not Resolved]
  - Autoimmune haemolytic anaemia [Recovering/Resolving]
  - Peritonitis bacterial [Recovered/Resolved]
  - Escherichia infection [Recovered/Resolved]
  - Cryptococcosis [Recovered/Resolved]
  - Pancytopenia [Recovering/Resolving]
  - Upper gastrointestinal haemorrhage [Unknown]
  - Duodenal ulcer [Unknown]
  - Portal hypertensive gastropathy [Unknown]
  - Haemolysis [Recovering/Resolving]
  - Neutropenia [Unknown]
